FAERS Safety Report 22087356 (Version 1)
Quarter: 2023Q1

REPORT INFORMATION
  Report Type: Report from Study
  Country: US (occurrence: US)
  Receive Date: 20230313
  Receipt Date: 20230313
  Transmission Date: 20230418
  Serious: Yes (Other)
  Sender: FDA-Public Use
  Company Number: US-ABBVIE-4335961

PATIENT
  Sex: Female

DRUGS (1)
  1. RINVOQ [Suspect]
     Active Substance: UPADACITINIB
     Indication: Rheumatoid arthritis
     Route: 048
     Dates: start: 20200420

REACTIONS (6)
  - Arthritis infective [Recovering/Resolving]
  - Joint effusion [Unknown]
  - Stress fracture [Unknown]
  - Incision site complication [Unknown]
  - Fall [Unknown]
  - Contusion [Unknown]
